FAERS Safety Report 23703147 (Version 4)
Quarter: 2024Q4

REPORT INFORMATION
  Report Type: Report from Study
  Country: US (occurrence: US)
  Receive Date: 20240403
  Receipt Date: 20241108
  Transmission Date: 20250115
  Serious: Yes (Other)
  Sender: OTSUKA
  Company Number: US-OTSUKA-2024_008642

PATIENT
  Age: 48 Year
  Sex: Female
  Weight: 83 kg

DRUGS (14)
  1. TOLVAPTAN [Suspect]
     Active Substance: TOLVAPTAN
     Indication: Congenital cystic kidney disease
     Dosage: 60 MG, QD (EVERY MORNING)
     Route: 048
     Dates: start: 20200924
  2. TOLVAPTAN [Suspect]
     Active Substance: TOLVAPTAN
     Dosage: 30 MG, QD (8 HOURS LATER)
     Route: 048
     Dates: start: 20200924
  3. BUPRENEX [Concomitant]
     Active Substance: BUPRENORPHINE HYDROCHLORIDE
     Indication: Product used for unknown indication
     Dosage: UNK, QW 1 PATCH ON TO THE SKIN ONCE A WEEK FOR 30 DAYS
     Route: 062
     Dates: start: 20240909, end: 20241008
  4. BOTOX [Concomitant]
     Active Substance: ONABOTULINUMTOXINA
     Indication: Product used for unknown indication
     Dosage: 100 DF, SINGLE (INTO THE MUSCLE ONCE)
     Route: 030
  5. ZOFRAN [Concomitant]
     Active Substance: ONDANSETRON HYDROCHLORIDE
     Indication: Nausea
     Dosage: 1 DF, AS NECESSARY (EVERY 8 HOURS)
     Route: 048
     Dates: start: 20240214
  6. ZOFRAN [Concomitant]
     Active Substance: ONDANSETRON HYDROCHLORIDE
     Indication: Vomiting
  7. PROTONIX [Concomitant]
     Active Substance: PANTOPRAZOLE SODIUM
     Indication: Product used for unknown indication
     Dosage: 1 DF, BID
     Route: 048
     Dates: start: 20230905
  8. PHENERGAN [Concomitant]
     Active Substance: PROMETHAZINE HYDROCHLORIDE
     Indication: Nausea
     Dosage: 1 DF, AS NECESSARY (EVERY 6 HOURS)
     Route: 048
  9. ZOLOFT [Concomitant]
     Active Substance: SERTRALINE HYDROCHLORIDE
     Indication: Product used for unknown indication
     Dosage: 1 DF, QD
     Route: 048
     Dates: start: 20231110
  10. TOPAMAX [Concomitant]
     Active Substance: TOPIRAMATE
     Indication: Product used for unknown indication
     Dosage: 1 DF, TID (AT MORNING, AT NOON, AND AT BEDTIME)
     Route: 048
     Dates: start: 20231226
  11. HYDROCORTISONE [Concomitant]
     Active Substance: HYDROCORTISONE
     Indication: Product used for unknown indication
     Dosage: UNK UNK, BID (APPLY TOPICALL 2 TIMES DAILY)
     Route: 061
     Dates: start: 20230308, end: 20240529
  12. XYLOCAINE [Concomitant]
     Active Substance: LIDOCAINE HYDROCHLORIDE
     Indication: Pain
     Dosage: UNK, AS NECESSARY (APPLY TOPICALLY EVERY 6 HOURS)
     Route: 061
     Dates: start: 20231123, end: 20240529
  13. RIMEGEPANT SULFATE [Concomitant]
     Active Substance: RIMEGEPANT SULFATE
     Indication: Headache
     Dosage: 1 DF, QD (AS NEEDED)
     Route: 048
     Dates: start: 20240214, end: 20240510
  14. ULTRAM [Concomitant]
     Active Substance: TRAMADOL HYDROCHLORIDE
     Indication: Pain
     Dosage: 1 DF, QD (AS NEEDED)
     Route: 048
     Dates: start: 20240214, end: 20240320

REACTIONS (8)
  - Gastric ulcer [Unknown]
  - Chronic kidney disease [Not Recovered/Not Resolved]
  - Metabolic acidosis [Unknown]
  - Hyperparathyroidism secondary [Unknown]
  - Pulse abnormal [Unknown]
  - Gastroenteritis viral [Unknown]
  - Hypertension [Unknown]
  - Weight decreased [Unknown]

NARRATIVE: CASE EVENT DATE: 20240328
